FAERS Safety Report 8366441-5 (Version None)
Quarter: 2012Q1

REPORT INFORMATION
  Report Type: 
  Country: None (occurrence: None)
  Receive Date: 20120323
  Receipt Date: 20111006
  Transmission Date: 20120608
  Serious: Yes (Hospitalization)
  Sender: FDA-Public Use
  Company Number: 163-21880-11041712

PATIENT
  Age: 77 Year
  Sex: Female
  Weight: 56.4 kg

DRUGS (24)
  1. OMEPRAZOLE [Concomitant]
  2. MIRALAX(MACROGOL)(POWDER) [Concomitant]
  3. REVLIMID [Suspect]
     Indication: MULTIPLE MYELOMA
     Dosage: 15 MG, DAILY X 14 DAYS, PO, 10 MG, 1 IN 1 D, PO,  15 MG, 21/28 DAYS, PO
     Route: 048
     Dates: start: 20100712, end: 20100725
  4. REVLIMID [Suspect]
     Indication: MULTIPLE MYELOMA
     Dosage: 15 MG, DAILY X 14 DAYS, PO, 10 MG, 1 IN 1 D, PO,  15 MG, 21/28 DAYS, PO
     Route: 048
     Dates: start: 20100916
  5. VELCADE [Concomitant]
  6. DEXAMETHASONE [Concomitant]
  7. LIDODERM(LIDOCAINE)(POULTICE OR PATCH) [Concomitant]
  8. OXYCONTIN [Concomitant]
  9. METHYLPHENIDATE(METHYLPHENIDATE)(TABLETS) [Concomitant]
  10. VITAMIN B-12(CYANOCOBALAMIN)(UNKNOWN) [Concomitant]
  11. ZOLEDRONIC ACID (ZOMETA) [Concomitant]
  12. LISINOPRIL [Concomitant]
  13. WARFARIN SODIUM [Concomitant]
  14. ONDANSETRON ( ONDANSETRON ) (TABLETS) [Concomitant]
  15. CARDIZEM(DILTIAZEM HYDROCHLORIDE)(CAPSULES) [Concomitant]
  16. TOPROL(METOPROLOL SUCCINATE)(TABLETS) [Concomitant]
  17. KLOR-CON(POTASSIUM CHLORIDE)(TABLETS) [Concomitant]
  18. PROCHLORPERAZINE (PROCHLORPERAZINE) (TABLETS) [Concomitant]
  19. JANTOVEN(WARFARIN SODIUM)(TABLETS) [Concomitant]
  20. OXYCODONE(OXYCODONE)(TABLETS) [Concomitant]
  21. SENNA-GEN(SENNA)(TABLETS) [Concomitant]
  22. GABAPENTIN [Concomitant]
  23. ACETAMINOPHEN(PARACETAMOL)(TABLETS) [Concomitant]
  24. LIDOCAINE-DIPHENHYD-AL-MAG-SIM(ALL OTHER THERAPEUTIC PRODUCTS)(UNKNOWN [Concomitant]

REACTIONS (2)
  - CHOLECYSTITIS ACUTE [None]
  - CARDIAC FAILURE CONGESTIVE [None]
